FAERS Safety Report 18247455 (Version 1)
Quarter: 2020Q3

REPORT INFORMATION
  Report Type: Spontaneous
  Country: CA (occurrence: CA)
  Receive Date: 20200909
  Receipt Date: 20200909
  Transmission Date: 20201103
  Serious: Yes (Hospitalization)
  Sender: FDA-Public Use
  Company Number: CA-PFIZER INC-2020347833

PATIENT

DRUGS (1)
  1. LORAZEPAM. [Suspect]
     Active Substance: LORAZEPAM
     Indication: ANXIETY
     Dosage: 2 MG, ONCE
     Route: 060

REACTIONS (6)
  - Ataxia [Unknown]
  - Nausea [Unknown]
  - Vertigo positional [Unknown]
  - Dizziness [Unknown]
  - Hallucination, auditory [Unknown]
  - Headache [Unknown]
